FAERS Safety Report 15871255 (Version 7)
Quarter: 2022Q3

REPORT INFORMATION
  Report Type: Report from Study
  Country: US (occurrence: US)
  Receive Date: 20190126
  Receipt Date: 20220915
  Transmission Date: 20221026
  Serious: Yes (Hospitalization, Other)
  Sender: FDA-Public Use
  Company Number: US-TAKEDA-2019TUS002375

PATIENT
  Sex: Female

DRUGS (6)
  1. VEDOLIZUMAB [Suspect]
     Active Substance: VEDOLIZUMAB
     Indication: Crohn^s disease
     Dosage: 300 MILLIGRAM
     Route: 042
  2. MESALAMINE [Concomitant]
     Active Substance: MESALAMINE
     Indication: Crohn^s disease
     Dosage: UNK UNK, TID
  3. ATROPINE [Concomitant]
     Active Substance: ATROPINE
     Indication: Diarrhoea
     Dosage: UNK UNK, QD
  4. DIPHENOXYLATE [Concomitant]
     Active Substance: DIPHENOXYLATE
     Indication: Diarrhoea
     Dosage: UNK UNK, QD
  5. CHLORDIAZEPOXIDE [Concomitant]
     Active Substance: CHLORDIAZEPOXIDE
     Indication: Abdominal pain
     Dosage: UNK
  6. CLIDINIUM [Concomitant]
     Active Substance: CLIDINIUM
     Indication: Abdominal pain
     Dosage: UNK

REACTIONS (11)
  - Dehydration [Recovered/Resolved]
  - Cystitis [Recovered/Resolved]
  - Nephrolithiasis [Unknown]
  - Crohn^s disease [Recovered/Resolved]
  - Kidney infection [Recovered/Resolved]
  - Coeliac disease [Unknown]
  - COVID-19 [Unknown]
  - Illness [Unknown]
  - Urinary tract infection [Unknown]
  - Vomiting [Recovered/Resolved]
  - Fatigue [Not Recovered/Not Resolved]
